FAERS Safety Report 7602558-8 (Version None)
Quarter: 2011Q3

REPORT INFORMATION
  Report Type: 
  Country: None (occurrence: None)
  Receive Date: 20110701
  Receipt Date: 20110607
  Transmission Date: 20111222
  Serious: Yes (Hospitalization, Other)
  Sender: FDA-Public Use
  Company Number: 2010004335

PATIENT
  Age: 67 Year
  Sex: Male
  Weight: 80 kg

DRUGS (2)
  1. ERLOTINIB HYDROCHLORIDE [Suspect]
     Indication: BILE DUCT CANCER
     Dosage: 100 MG, UID/QD, ORAL
     Route: 048
     Dates: start: 20060821, end: 20070421
  2. BEVACIZUMAB (BEVACIZUMAB) [Suspect]
     Dosage: 8MG/KG, CYCLIC, IV NOS
     Route: 042
     Dates: start: 20060821, end: 20070409

REACTIONS (9)
  - BILE DUCT STENOSIS [None]
  - ABDOMINAL PAIN [None]
  - CHILLS [None]
  - CHOLANGITIS [None]
  - PYREXIA [None]
  - FALL [None]
  - DECREASED APPETITE [None]
  - HYPONATRAEMIA [None]
  - LOSS OF CONTROL OF LEGS [None]
